FAERS Safety Report 10906560 (Version 1)
Quarter: 2015Q1

REPORT INFORMATION
  Report Type: Spontaneous
  Country: PL (occurrence: PL)
  Receive Date: 20150312
  Receipt Date: 20150312
  Transmission Date: 20150721
  Serious: Yes (Hospitalization)
  Sender: FDA-Public Use
  Company Number: PL-ROCHE-1549655

PATIENT
  Age: 36 Year
  Sex: Male

DRUGS (12)
  1. NITRENDIPINE [Concomitant]
     Active Substance: NITRENDIPINE
     Route: 065
  2. EQUORAL [Suspect]
     Active Substance: CYCLOSPORINE
     Indication: ANTIVIRAL PROPHYLAXIS
     Dosage: 2X150MG
     Route: 065
  3. TULIP (POLAND) [Concomitant]
     Route: 065
  4. POLPRAZOL [Concomitant]
     Active Substance: OMEPRAZOLE
     Route: 065
  5. IPOREL [Concomitant]
     Active Substance: CLONIDINE
     Route: 065
  6. BISEPTOL [Concomitant]
     Active Substance: SULFAMETHOXAZOLE\TRIMETHOPRIM
     Route: 065
  7. EQUORAL [Suspect]
     Active Substance: CYCLOSPORINE
     Dosage: DAILY DOSE INCREASED.
     Route: 065
  8. ENCORTON [Concomitant]
     Active Substance: PREDNISONE
     Route: 065
  9. CELLCEPT [Suspect]
     Active Substance: MYCOPHENOLATE MOFETIL\MYCOPHENOLATE MOFETIL HYDROCHLORIDE
     Indication: PROPHYLAXIS AGAINST TRANSPLANT REJECTION
     Dosage: 2X1000MG
     Route: 065
  10. VALCYTE [Suspect]
     Active Substance: VALGANCICLOVIR HYDROCHLORIDE
     Indication: ANTIVIRAL PROPHYLAXIS
     Route: 048
  11. CARDURA XL [Concomitant]
     Active Substance: DOXAZOSIN MESYLATE
     Route: 065
  12. BETALOC ZOK [Concomitant]
     Active Substance: METOPROLOL SUCCINATE
     Route: 065

REACTIONS (5)
  - Interstitial lung disease [Recovered/Resolved]
  - Cytomegalovirus infection [Unknown]
  - Aspartate aminotransferase increased [Unknown]
  - Underdose [Unknown]
  - Alanine aminotransferase increased [Unknown]
